FAERS Safety Report 19116608 (Version 1)
Quarter: 2021Q2

REPORT INFORMATION
  Report Type: Spontaneous
  Country: IT (occurrence: IT)
  Receive Date: 20210409
  Receipt Date: 20210409
  Transmission Date: 20210717
  Serious: Yes (Hospitalization)
  Sender: FDA-Public Use
  Company Number: IT-ROCHE-2800883

PATIENT
  Age: 53 Year
  Sex: Male

DRUGS (6)
  1. DIBASE [Concomitant]
     Active Substance: CHOLECALCIFEROL
  2. TOCILIZUMAB. [Suspect]
     Active Substance: TOCILIZUMAB
     Indication: RHEUMATOID ARTHRITIS
     Route: 058
     Dates: start: 20190201
  3. DELTACORTENE [Concomitant]
     Active Substance: PREDNISONE
  4. FOLINA [Concomitant]
  5. PANTORC [Concomitant]
     Active Substance: PANTOPRAZOLE SODIUM
  6. REUMAFLEX (ITALY) [Concomitant]
     Active Substance: METHOTREXATE SODIUM

REACTIONS (1)
  - Pneumonia legionella [Recovered/Resolved]

NARRATIVE: CASE EVENT DATE: 20201005
